FAERS Safety Report 9109284 (Version 1)
Quarter: 2013Q1

REPORT INFORMATION
  Report Type: Spontaneous
  Country: AU (occurrence: AU)
  Receive Date: 20130222
  Receipt Date: 20130222
  Transmission Date: 20140127
  Serious: Yes (Other)
  Sender: FDA-Public Use
  Company Number: PHHY2013AU017503

PATIENT
  Sex: Male

DRUGS (1)
  1. FAMCICLOVIR [Suspect]
     Dosage: UNK UKN, UNK

REACTIONS (3)
  - Dyspnoea exertional [Unknown]
  - Tachycardia [Unknown]
  - Somnolence [Unknown]
